FAERS Safety Report 5073888-1 (Version None)
Quarter: 2006Q3

REPORT INFORMATION
  Report Type: 
  Country: None (occurrence: None)
  Receive Date: 20060808
  Receipt Date: 20060418
  Transmission Date: 20061208
  Serious: No
  Sender: FDA-Public Use
  Company Number: US-AMGEN-KDL176896

PATIENT
  Sex: Female
  Weight: 77.2 kg

DRUGS (3)
  1. PROCRIT [Suspect]
     Indication: ANAEMIA OF MALIGNANT DISEASE
     Dates: start: 20050701, end: 20060101
  2. LASIX [Concomitant]
  3. SPIRONOLACTONE [Concomitant]

REACTIONS (1)
  - OEDEMA PERIPHERAL [None]
